FAERS Safety Report 13264164 (Version 1)
Quarter: 2017Q1

REPORT INFORMATION
  Report Type: Report from Study
  Country: JP (occurrence: JP)
  Receive Date: 20170223
  Receipt Date: 20170223
  Transmission Date: 20170428
  Serious: Yes (Hospitalization)
  Sender: FDA-Public Use
  Company Number: JP-SA-2016SA117694

PATIENT
  Age: 70 Year
  Sex: Male

DRUGS (4)
  1. PHOSBLOCK [Suspect]
     Active Substance: FERRIC HYDROXIDE
     Dosage: STRENGTH: 250 MG
     Route: 048
     Dates: start: 20160126, end: 20160402
  2. NESP [Suspect]
     Active Substance: DARBEPOETIN ALFA
     Route: 065
     Dates: start: 20160218, end: 20160415
  3. PHOSBLOCK [Suspect]
     Active Substance: FERRIC HYDROXIDE
     Route: 048
     Dates: start: 20160402
  4. NESP [Suspect]
     Active Substance: DARBEPOETIN ALFA
     Route: 065
     Dates: start: 20151124, end: 20151223

REACTIONS (3)
  - Arteriovenous fistula site complication [Recovering/Resolving]
  - Hospitalisation [Recovering/Resolving]
  - Hospitalisation [Recovering/Resolving]

NARRATIVE: CASE EVENT DATE: 20151222
